FAERS Safety Report 7380075-0 (Version None)
Quarter: 2011Q1

REPORT INFORMATION
  Report Type: 
  Country: None (occurrence: None)
  Receive Date: 20110318
  Receipt Date: 20110308
  Transmission Date: 20110831
  Serious: Yes (Other)
  Sender: FDA-Public Use
  Company Number: FK201100441

PATIENT
  Age: 66 Year
  Sex: Female

DRUGS (4)
  1. INTERFERON BETA (INTERFERON BETA) (INTERFERON BETA) [Concomitant]
  2. VINCRISTINE SULFATE [Suspect]
     Indication: MULTIPLE MYELOMA
     Dosage: (5 MG)
  3. DACARBAZINE [Suspect]
     Indication: MULTIPLE MYELOMA
     Dosage: (5000 MG)
  4. NIMUSTINE HYDROCHLORIDE (NIMUSTINE HYDROCHLORIDE) (NIMUSTINE HYDROCHLO [Suspect]
     Indication: MULTIPLE MYELOMA
     Dosage: (500 MG)

REACTIONS (1)
  - THYROID CANCER [None]
